FAERS Safety Report 5121774-0 (Version None)
Quarter: 2006Q4

REPORT INFORMATION
  Report Type: 
  Country: None (occurrence: None)
  Receive Date: 20061003
  Receipt Date: 20060920
  Transmission Date: 20070319
  Serious: Yes (Other)
  Sender: FDA-Public Use
  Company Number: 230003M06BEL

PATIENT
  Sex: Male

DRUGS (2)
  1. REBIF [Suspect]
  2. ACETYLSACICYLIC ACID [Concomitant]

REACTIONS (1)
  - PULMONARY EMBOLISM [None]
